FAERS Safety Report 8198541-7 (Version None)
Quarter: 2012Q1

REPORT INFORMATION
  Report Type: 
  Country: None (occurrence: None)
  Receive Date: 20120309
  Receipt Date: 20120229
  Transmission Date: 20120608
  Serious: Yes (Other)
  Sender: FDA-Public Use
  Company Number: US-JNJFOC-20120300742

PATIENT
  Sex: Female
  Weight: 129.28 kg

DRUGS (6)
  1. BUTALBITAL ACETAMINOPHEN AND CAFFEINE [Concomitant]
  2. STELARA [Suspect]
     Indication: PSORIASIS
     Dosage: ONCE EVERY 2-3 MONTHS
     Route: 058
     Dates: start: 20100301
  3. LISINOPRIL [Concomitant]
  4. ASPIRIN [Concomitant]
  5. SIMVASTATIN [Concomitant]
  6. TRAMADOL HCL [Concomitant]

REACTIONS (2)
  - EXTRADURAL ABSCESS [None]
  - STAPHYLOCOCCAL INFECTION [None]
